FAERS Safety Report 7717531-9 (Version None)
Quarter: 2011Q3

REPORT INFORMATION
  Report Type: 
  Country: None (occurrence: None)
  Receive Date: 20110830
  Receipt Date: 20110817
  Transmission Date: 20111222
  Serious: Yes (Other)
  Sender: FDA-Public Use
  Company Number: FR-ELI_LILLY_AND_COMPANY-FR201106008752

PATIENT
  Age: 62 Year
  Sex: Female
  Weight: 62 kg

DRUGS (6)
  1. FORTEO [Suspect]
     Indication: OSTEOPOROSIS
     Dosage: 20 UG, QD
     Route: 058
     Dates: start: 20100213
  2. PREVISCAN [Concomitant]
     Indication: PORTAL VEIN THROMBOSIS
     Dosage: 1 DF, QD
     Route: 048
     Dates: start: 19980101
  3. FUROSEMIDE [Concomitant]
     Dosage: 1 DF, QD
     Route: 048
     Dates: start: 20110101
  4. HYDREA [Concomitant]
     Indication: POLYCYTHAEMIA VERA
     Dosage: 1 DF, BID
     Route: 048
     Dates: start: 19980101
  5. BISOPROLOL FUMARATE [Concomitant]
     Indication: HYPERTENSION
     Dosage: 1 DF, QD
     Route: 048
     Dates: start: 19980101
  6. HYDREA [Concomitant]
     Dosage: UNK

REACTIONS (2)
  - FATIGUE [None]
  - HAEMATOCRIT INCREASED [None]
